FAERS Safety Report 11055573 (Version 4)
Quarter: 2015Q2

REPORT INFORMATION
  Report Type: Report from Study
  Country: AU (occurrence: AU)
  Receive Date: 20150422
  Receipt Date: 20150529
  Transmission Date: 20150821
  Serious: Yes (Hospitalization)
  Sender: FDA-Public Use
  Company Number: AU-MERCK-1504AUS003932

PATIENT
  Age: 39 Year
  Sex: Male
  Weight: 82.4 kg

DRUGS (11)
  1. PEMBROLIZUMAB. [Suspect]
     Active Substance: PEMBROLIZUMAB
     Dosage: 2 MG/KG, Q3W
     Route: 042
     Dates: start: 20150306, end: 20150306
  2. PEMBROLIZUMAB. [Suspect]
     Active Substance: PEMBROLIZUMAB
     Dosage: 2 MG/KG, Q3W
     Route: 042
     Dates: start: 20150424
  3. PEMBROLIZUMAB. [Suspect]
     Active Substance: PEMBROLIZUMAB
     Indication: MALIGNANT MELANOMA
     Dosage: 2 MG/KG, Q3W
     Route: 042
     Dates: start: 20150116, end: 20150206
  4. CEPHALEXIN. [Concomitant]
     Active Substance: CEPHALEXIN
     Indication: RECTAL LESION
     Dosage: 500 MG, TID
     Route: 048
     Dates: start: 20150129
  5. PREDNISONE. [Concomitant]
     Active Substance: PREDNISONE
     Indication: DIARRHOEA
  6. IPILIMUMAB [Suspect]
     Active Substance: IPILIMUMAB
     Dosage: UNK, Q3W
     Route: 042
     Dates: start: 20150206, end: 20150206
  7. METRONIDAZOLE. [Concomitant]
     Active Substance: METRONIDAZOLE
     Indication: RECTAL LESION
     Dosage: 400 MG, TID
     Route: 048
     Dates: start: 20150129
  8. RECTOGESIC [Concomitant]
     Active Substance: NITROGLYCERIN
     Indication: RECTAL LESION
     Dosage: UNK, PRN
     Route: 061
     Dates: start: 20150129
  9. IPILIMUMAB [Suspect]
     Active Substance: IPILIMUMAB
     Indication: MALIGNANT MELANOMA
     Dosage: UNK, Q3W
     Route: 042
     Dates: start: 20150116, end: 20150116
  10. PEMBROLIZUMAB. [Suspect]
     Active Substance: PEMBROLIZUMAB
     Dosage: 2 MG/KG, Q3W
     Route: 042
     Dates: start: 20150402, end: 20150402
  11. PREDNISONE. [Concomitant]
     Active Substance: PREDNISONE
     Indication: RASH
     Dosage: 5 MG, QD
     Route: 048
     Dates: start: 20150309, end: 20150311

REACTIONS (2)
  - Rectal haemorrhage [Recovered/Resolved]
  - Aspartate aminotransferase increased [Recovered/Resolved]

NARRATIVE: CASE EVENT DATE: 20150323
